FAERS Safety Report 25508420 (Version 1)
Quarter: 2025Q3

REPORT INFORMATION
  Report Type: Spontaneous
  Country: IN (occurrence: None)
  Receive Date: 20250703
  Receipt Date: 20250703
  Transmission Date: 20251021
  Serious: Yes (Hospitalization, Other)
  Sender: LUPIN
  Company Number: IN-LUPIN PHARMACEUTICALS INC.-2025-05556

PATIENT

DRUGS (1)
  1. LINEZOLID [Suspect]
     Active Substance: LINEZOLID
     Indication: Product used for unknown indication
     Route: 065

REACTIONS (1)
  - Gastrointestinal haemorrhage [Unknown]
